FAERS Safety Report 12075649 (Version 1)
Quarter: 2016Q1

REPORT INFORMATION
  Report Type: Report from Study
  Country: CA (occurrence: CA)
  Receive Date: 20160213
  Receipt Date: 20160213
  Transmission Date: 20160526
  Serious: Yes (Disabling, Other)
  Sender: FDA-Public Use
  Company Number: CA-BRISTOL-MYERS SQUIBB COMPANY-BMS-2016-008768

PATIENT
  Sex: Male

DRUGS (1)
  1. NIVOLUMAB [Suspect]
     Active Substance: NIVOLUMAB
     Indication: METASTATIC MALIGNANT MELANOMA
     Dosage: 3 MG/KG, Q2WK
     Route: 065
     Dates: start: 201511, end: 20151223

REACTIONS (6)
  - Ischaemia [Recovering/Resolving]
  - Uveitis [Unknown]
  - Pain in extremity [Unknown]
  - Eye operation [Unknown]
  - Retinal detachment [Unknown]
  - Blindness [Unknown]

NARRATIVE: CASE EVENT DATE: 20151223
